FAERS Safety Report 8357815-7 (Version None)
Quarter: 2012Q2

REPORT INFORMATION
  Report Type: 
  Country: None (occurrence: None)
  Receive Date: 20120514
  Receipt Date: 20110524
  Transmission Date: 20120825
  Serious: Yes (Hospitalization)
  Sender: FDA-Public Use
  Company Number: US-ALEXION-A201100234

PATIENT

DRUGS (4)
  1. SOLIRIS [Suspect]
     Indication: PAROXYSMAL NOCTURNAL HAEMOGLOBINURIA
     Dosage: 900 MG, Q2W
     Route: 042
     Dates: start: 20070907
  2. METOPROLOL TARTRATE [Concomitant]
     Indication: BLOOD PRESSURE INCREASED
     Dosage: UNK
  3. IRON [Concomitant]
  4. FOLIC ACID [Concomitant]
     Dosage: UNK

REACTIONS (3)
  - INCISION SITE COMPLICATION [None]
  - ABDOMINAL PAIN [None]
  - UTERINE LEIOMYOMA [None]
